FAERS Safety Report 7108896-X (Version None)
Quarter: 2010Q4

REPORT INFORMATION
  Report Type: 
  Country: None (occurrence: None)
  Receive Date: 20101117
  Receipt Date: 20101027
  Transmission Date: 20110411
  Serious: No
  Sender: FDA-Public Use
  Company Number: US-BAYER-201023144BCC

PATIENT
  Sex: Female

DRUGS (1)
  1. MIDOL EXTENDED RELIEF CAPLETS [Suspect]
     Indication: BACK PAIN
     Dosage: BOTTLE COUNT 20S
     Route: 048

REACTIONS (1)
  - BACK PAIN [None]
